FAERS Safety Report 21229238 (Version 1)
Quarter: 2022Q3

REPORT INFORMATION
  Report Type: Spontaneous
  Country: GB (occurrence: GB)
  Receive Date: 20220818
  Receipt Date: 20220818
  Transmission Date: 20221026
  Serious: Yes (Other)
  Sender: FDA-Public Use
  Company Number: GB-ABBVIE-22K-167-4506420-00

PATIENT
  Age: 45 Year
  Sex: Female

DRUGS (4)
  1. TESTOSTERONE [Suspect]
     Active Substance: TESTOSTERONE
     Indication: Hormone replacement therapy
     Route: 065
     Dates: start: 2017
  2. UTROGESTAN [Suspect]
     Active Substance: PROGESTERONE
     Indication: Hormone replacement therapy
     Dosage: DAILY FOR TWO WEEKS EACH MONTH
     Route: 065
     Dates: start: 2017
  3. ESTRADIOL [Suspect]
     Active Substance: ESTRADIOL
     Indication: Hormone replacement therapy
     Dosage: ONE 100 MICROGRAM PATCH, 100 MICROGRAM, PATCH
     Route: 065
     Dates: start: 2017, end: 2017
  4. ESTRADIOL [Suspect]
     Active Substance: ESTRADIOL
     Dosage: TWO 100 MICROGRAM PATCHES
     Route: 065
     Dates: start: 2017

REACTIONS (24)
  - Suicidal ideation [Recovered/Resolved]
  - Mental impairment [Recovered/Resolved]
  - Crying [Recovered/Resolved]
  - Paranoia [Recovered/Resolved]
  - Heavy menstrual bleeding [Recovered/Resolved]
  - Emotional distress [Recovered/Resolved]
  - Disturbance in attention [Recovered/Resolved]
  - Psychiatric symptom [Recovered/Resolved]
  - Marital problem [Recovered/Resolved]
  - Aggression [Recovered/Resolved]
  - Anxiety [Recovered/Resolved]
  - Anger [Recovered/Resolved]
  - Insomnia [Recovered/Resolved]
  - Loss of libido [Recovered/Resolved]
  - Intermenstrual bleeding [Recovered/Resolved]
  - Off label use [Unknown]
  - Drug ineffective [Unknown]
  - Tearfulness [Recovered/Resolved]
  - Panic disorder [Recovered/Resolved]
  - Stress [Recovered/Resolved]
  - Tension [Recovered/Resolved]
  - Irritability [Recovered/Resolved]
  - Decreased interest [Recovered/Resolved]
  - Fatigue [Recovered/Resolved]

NARRATIVE: CASE EVENT DATE: 20170101
